FAERS Safety Report 14556322 (Version 1)
Quarter: 2018Q1

REPORT INFORMATION
  Report Type: Spontaneous
  Country: US (occurrence: US)
  Receive Date: 20180221
  Receipt Date: 20180221
  Transmission Date: 20180509
  Serious: Yes (Death, Other)
  Sender: FDA-Public Use
  Company Number: US-KITE, A GILEAD COMPANY-2042376

PATIENT
  Age: 64 Year
  Sex: Female

DRUGS (7)
  1. CYCLOPHOSPHAMIDE. [Concomitant]
     Active Substance: CYCLOPHOSPHAMIDE
     Dates: start: 20171221, end: 20171223
  2. FLUDARABINE [Concomitant]
     Active Substance: FLUDARABINE PHOSPHATE
     Dates: start: 20171221, end: 20171223
  3. YESCARTA [Suspect]
     Active Substance: AXICABTAGENE CILOLEUCEL
     Indication: DIFFUSE LARGE B-CELL LYMPHOMA
     Route: 042
     Dates: start: 20171226, end: 20171226
  4. FLUCONAZOLE. [Concomitant]
     Active Substance: FLUCONAZOLE
     Dates: start: 20171226
  5. FLUCONAZOLE. [Concomitant]
     Active Substance: FLUCONAZOLE
     Dates: start: 20180111
  6. KEPPRA [Concomitant]
     Active Substance: LEVETIRACETAM
     Dates: start: 20171226
  7. ACYCLOVIR. [Concomitant]
     Active Substance: ACYCLOVIR
     Dates: start: 20171226

REACTIONS (18)
  - Histiocytosis haematophagic [Fatal]
  - Clostridium difficile colitis [Unknown]
  - Encephalopathy [Unknown]
  - Cholecystitis acute [Unknown]
  - Ventricular failure [Unknown]
  - Subarachnoid haemorrhage [Unknown]
  - Cytokine release syndrome [Unknown]
  - Liver disorder [Unknown]
  - Bradycardia [Fatal]
  - Pulmonary oedema [Unknown]
  - Hepatic steatosis [Unknown]
  - Cardio-respiratory arrest [Fatal]
  - Cardiac failure congestive [Unknown]
  - Neurotoxicity [Unknown]
  - Hypoxia [Unknown]
  - Stress cardiomyopathy [Unknown]
  - Asthenia [Unknown]
  - Brain stem infarction [Unknown]

NARRATIVE: CASE EVENT DATE: 20171228
